FAERS Safety Report 4285050-0 (Version None)
Quarter: 2004Q1

REPORT INFORMATION
  Report Type: 
  Country: None (occurrence: None)
  Receive Date: 20040204
  Receipt Date: 20030130
  Transmission Date: 20041129
  Serious: Yes (Hospitalization, Other)
  Sender: FDA-Public Use
  Company Number: WAES 0301USA03199

PATIENT
  Age: 64 Year
  Sex: Male
  Weight: 89 kg

DRUGS (14)
  1. BETAXOLOL OPHTHALMIC SOLUTION [Concomitant]
  2. CALCITONIN [Concomitant]
  3. DIGOXIN [Concomitant]
  4. DOCUSATE SODIUM [Concomitant]
  5. TRUSOPT [Concomitant]
     Route: 047
  6. FOLIC ACID [Concomitant]
  7. LASIX [Concomitant]
     Dates: start: 19981201, end: 20030707
  8. ISOSORBIDE [Concomitant]
  9. POTASSIUM (UNSPECIFIED) [Concomitant]
  10. PSYLLIUM HUSK [Concomitant]
  11. VIOXX [Suspect]
     Indication: ARTHRITIS
     Route: 048
     Dates: start: 20001201
  12. ZOCOR [Concomitant]
  13. VITAMIN E [Concomitant]
  14. WARFARIN [Concomitant]
     Dates: start: 20000101, end: 20030707

REACTIONS (16)
  - ANGINA PECTORIS [None]
  - ATHEROSCLEROSIS [None]
  - BLOOD PRESSURE DECREASED [None]
  - CARDIAC MURMUR [None]
  - CEREBROVASCULAR ACCIDENT [None]
  - CORONARY ARTERY STENOSIS [None]
  - EPISTAXIS [None]
  - HEART RATE DECREASED [None]
  - HYPERTENSION [None]
  - LACUNAR INFARCTION [None]
  - MUSCLE CRAMP [None]
  - MYALGIA [None]
  - NUCLEAR MAGNETIC RESONANCE IMAGING ABNORMAL [None]
  - PLEURAL FIBROSIS [None]
  - PRODUCTIVE COUGH [None]
  - TRANSIENT ISCHAEMIC ATTACK [None]
